FAERS Safety Report 12255822 (Version 1)
Quarter: 2016Q2

REPORT INFORMATION
  Report Type: Spontaneous
  Country: US (occurrence: None)
  Receive Date: 20160411
  Receipt Date: 20160411
  Transmission Date: 20160815
  Serious: Yes (Other)
  Sender: FDA-Public Use
  Company Number: None

PATIENT
  Age: 60 Year
  Sex: Male
  Weight: 92.99 kg

DRUGS (2)
  1. CVS NASAL SPRAY CVS [Suspect]
     Active Substance: PHENYLEPHRINE HYDROCHLORIDE
     Indication: SINUS CONGESTION
     Dates: start: 20160104, end: 20160106
  2. CVS NASAL SPRAY CVS [Suspect]
     Active Substance: PHENYLEPHRINE HYDROCHLORIDE
     Indication: NASAL CONGESTION
     Dates: start: 20160104, end: 20160106

REACTIONS (4)
  - Ageusia [None]
  - Instillation site pain [None]
  - Anosmia [None]
  - Lacrimation increased [None]

NARRATIVE: CASE EVENT DATE: 20160105
